FAERS Safety Report 18876880 (Version 2)
Quarter: 2021Q1

REPORT INFORMATION
  Report Type: Spontaneous
  Country: US (occurrence: US)
  Receive Date: 20210211
  Receipt Date: 20210222
  Transmission Date: 20210420
  Serious: Yes (Other)
  Sender: FDA-Public Use
  Company Number: US-BIOVITRUM-2021US1434

PATIENT
  Sex: Male

DRUGS (6)
  1. SYNAGIS [Suspect]
     Active Substance: PALIVIZUMAB
     Indication: RENAL ARTERY ARTERIOSCLEROSIS
  2. SYNAGIS [Suspect]
     Active Substance: PALIVIZUMAB
     Indication: PREMATURE BABY
     Route: 030
     Dates: start: 202011
  3. SYNAGIS [Suspect]
     Active Substance: PALIVIZUMAB
     Indication: AORTIC THROMBOSIS
  4. SYNAGIS [Suspect]
     Active Substance: PALIVIZUMAB
     Indication: EMBOLISM
  5. SYNAGIS [Suspect]
     Active Substance: PALIVIZUMAB
     Indication: ADRENOCORTICAL INSUFFICIENCY NEONATAL
  6. SYNAGIS [Suspect]
     Active Substance: PALIVIZUMAB
     Indication: BRONCHOPULMONARY DYSPLASIA

REACTIONS (3)
  - Influenza [Unknown]
  - COVID-19 [Unknown]
  - Inappropriate schedule of product administration [Unknown]
